FAERS Safety Report 24836612 (Version 1)
Quarter: 2025Q1

REPORT INFORMATION
  Report Type: Spontaneous
  Country: CA (occurrence: CA)
  Receive Date: 20250113
  Receipt Date: 20250113
  Transmission Date: 20250409
  Serious: Yes (Other)
  Sender: ROCHE
  Company Number: CA-ROCHE-10000177713

PATIENT
  Age: 13 Year
  Sex: Female

DRUGS (1)
  1. OSELTAMIVIR [Suspect]
     Active Substance: OSELTAMIVIR
     Indication: Influenza
     Route: 065

REACTIONS (3)
  - Off label use [Unknown]
  - Acute respiratory distress syndrome [Unknown]
  - Renal injury [Unknown]
